FAERS Safety Report 26070283 (Version 1)
Quarter: 2025Q4

REPORT INFORMATION
  Report Type: Spontaneous
  Country: EG (occurrence: EG)
  Receive Date: 20251120
  Receipt Date: 20251120
  Transmission Date: 20260117
  Serious: Yes (Hospitalization)
  Sender: NOVO NORDISK
  Company Number: EG-NOVOPROD-1561188

PATIENT
  Age: 721 Month
  Sex: Male
  Weight: 62 kg

DRUGS (5)
  1. ASPIRIN [Concomitant]
     Active Substance: ASPIRIN
     Indication: Anticoagulant therapy
     Dosage: UNK (1 TAB EACH DAY)
     Route: 048
  2. INSULIN HUMAN [Suspect]
     Active Substance: INSULIN HUMAN
     Indication: Diabetes mellitus
     Dosage: (30U TWICE/MORNING + EVENING OR 30U ONCE/MORNING ACCORDING TO BGL MEASUREMENTS)
     Route: 058
  3. PLAVIX [Concomitant]
     Active Substance: CLOPIDOGREL BISULFATE
     Indication: Anticoagulant therapy
     Dosage: UNK (1 TAB EACH DAY)
     Route: 048
  4. NICORANDIL [Concomitant]
     Active Substance: NICORANDIL
     Indication: Heart rate irregular
     Dosage: 10 MG(HALF TAB / MORNING AND HALF TAB / EVENING)
     Route: 048
  5. TRIMETAZIDINE DIHYDROCHLORIDE [Concomitant]
     Active Substance: TRIMETAZIDINE DIHYDROCHLORIDE
     Indication: Cardiac disorder
     Dosage: UNK (1 TAB/ MORNING AND 1 TAB/ EVENING)
     Route: 048

REACTIONS (2)
  - Coronary arterial stent insertion [Recovered/Resolved]
  - Coronary arterial stent insertion [Recovered/Resolved]

NARRATIVE: CASE EVENT DATE: 20170101
